FAERS Safety Report 11105127 (Version 1)
Quarter: 2015Q2

REPORT INFORMATION
  Report Type: Spontaneous
  Country: US (occurrence: US)
  Receive Date: 20150511
  Receipt Date: 20150511
  Transmission Date: 20150821
  Serious: No
  Sender: FDA-Public Use
  Company Number: US-GLAXOSMITHKLINE-US2015062542

PATIENT

DRUGS (1)
  1. FLOLAN [Suspect]
     Active Substance: EPOPROSTENOL SODIUM
     Indication: ACUTE RESPIRATORY DISTRESS SYNDROME
     Dosage: UNK, U

REACTIONS (2)
  - Therapeutic response unexpected [Unknown]
  - Off label use [Unknown]
